FAERS Safety Report 5497031-X (Version None)
Quarter: 2007Q4

REPORT INFORMATION
  Report Type: 
  Country: None (occurrence: None)
  Receive Date: 20071025
  Receipt Date: 20071019
  Transmission Date: 20080405
  Serious: Yes (Hospitalization)
  Sender: FDA-Public Use
  Company Number: FR-AVENTIS-200713347FR

PATIENT
  Age: 81 Year
  Sex: Female

DRUGS (8)
  1. LASIX [Suspect]
     Route: 048
  2. CORDARONE [Suspect]
     Indication: ATRIAL FIBRILLATION
     Route: 048
     Dates: end: 20070912
  3. TAHOR [Suspect]
     Route: 048
     Dates: end: 20070919
  4. COVERSYL                           /00790701/ [Suspect]
     Route: 048
     Dates: end: 20070919
  5. MEDIATENSYL                        /00631801/ [Suspect]
     Route: 048
     Dates: end: 20070919
  6. PLAVIX [Suspect]
     Route: 048
     Dates: end: 20070919
  7. LEVOTHYROX [Suspect]
     Route: 048
  8. ALDACTONE [Concomitant]
     Dates: start: 20070801

REACTIONS (3)
  - DYSPNOEA [None]
  - HYPOXIA [None]
  - LUNG DISORDER [None]
